FAERS Safety Report 10790558 (Version 2)
Quarter: 2015Q1

REPORT INFORMATION
  Report Type: Report from Study
  Country: US (occurrence: US)
  Receive Date: 20150212
  Receipt Date: 20150303
  Transmission Date: 20150721
  Serious: Yes (Hospitalization, Other)
  Sender: FDA-Public Use
  Company Number: US-GLAXOSMITHKLINE-US2015GSK017576

PATIENT
  Age: 50 Year
  Sex: Male
  Weight: 76.8 kg

DRUGS (2)
  1. DABRAFENIB [Suspect]
     Active Substance: DABRAFENIB
     Indication: THYROID CANCER
     Dosage: 150 MG, BID
     Route: 048
     Dates: start: 20140626
  2. TYKERB [Suspect]
     Active Substance: LAPATINIB DITOSYLATE
     Indication: THYROID CANCER
     Dosage: 750 MG, QD
     Route: 048
     Dates: start: 20140710

REACTIONS (2)
  - Abdominal pain [Recovered/Resolved]
  - Large intestine perforation [Recovered/Resolved]

NARRATIVE: CASE EVENT DATE: 20141028
